FAERS Safety Report 22358357 (Version 1)
Quarter: 2023Q2

REPORT INFORMATION
  Report Type: Spontaneous
  Country: US (occurrence: US)
  Receive Date: 20230524
  Receipt Date: 20230524
  Transmission Date: 20230722
  Serious: No
  Sender: FDA-Public Use
  Company Number: US-BIOGEN-2023BI01206909

PATIENT
  Sex: Female

DRUGS (8)
  1. TECFIDERA [Suspect]
     Active Substance: DIMETHYL FUMARATE
     Indication: Product used for unknown indication
     Route: 050
  2. VITAMIN D3 [Concomitant]
     Active Substance: CHOLECALCIFEROL
     Route: 050
  3. ESTRACE [Concomitant]
     Active Substance: ESTRADIOL
     Route: 050
  4. FLONASE [Concomitant]
     Active Substance: FLUTICASONE PROPIONATE
     Route: 050
  5. NIZORAL [Concomitant]
     Active Substance: KETOCONAZOLE
     Route: 050
  6. MIRENA [Concomitant]
     Active Substance: LEVONORGESTREL
     Route: 050
  7. OCREVUS [Concomitant]
     Active Substance: OCRELIZUMAB
     Route: 050
  8. Cynocobalamin [Concomitant]
     Route: 050

REACTIONS (2)
  - Fatigue [Unknown]
  - Flushing [Unknown]
